FAERS Safety Report 6310268-2 (Version None)
Quarter: 2009Q3

REPORT INFORMATION
  Report Type: 
  Country: None (occurrence: None)
  Receive Date: 20090814
  Receipt Date: 20090810
  Transmission Date: 20100115
  Serious: Yes (Death)
  Sender: FDA-Public Use
  Company Number: MW-GILEAD-2009-0023577

PATIENT
  Age: 46 Year
  Sex: Male
  Weight: 51 kg

DRUGS (6)
  1. TRUVADA [Suspect]
     Indication: HIV INFECTION
     Route: 048
     Dates: start: 20090604
  2. COTRIM [Suspect]
  3. ISONIAZID [Suspect]
     Indication: TUBERCULOSIS
     Dates: start: 20090527
  4. PYRAZINAMIDE [Suspect]
     Indication: TUBERCULOSIS
     Dates: start: 20090527
  5. ETHAMBUTOL [Suspect]
     Indication: TUBERCULOSIS
     Dates: start: 20090527
  6. EFAVIRENZ [Concomitant]
     Indication: HIV INFECTION
     Dates: start: 20090604

REACTIONS (1)
  - DEATH [None]
